FAERS Safety Report 20280799 (Version 1)
Quarter: 2022Q1

REPORT INFORMATION
  Report Type: Spontaneous
  Country: CA (occurrence: CA)
  Receive Date: 20220103
  Receipt Date: 20220103
  Transmission Date: 20220423
  Serious: Yes (Other)
  Sender: FDA-Public Use
  Company Number: None

PATIENT
  Age: 53 Year
  Sex: Male

DRUGS (2)
  1. OXALIPLATIN [Suspect]
     Active Substance: OXALIPLATIN
     Indication: Colorectal cancer
     Dosage: SOLUTION INTRAVENOUS, SINGLE USE VIALS
     Route: 042
  2. CAPECITABINE\OXALIPLATIN [Concomitant]
     Active Substance: CAPECITABINE\OXALIPLATIN

REACTIONS (3)
  - Chest discomfort [Recovered/Resolved]
  - Tongue oedema [Recovered/Resolved]
  - Vision blurred [Recovered/Resolved]
